FAERS Safety Report 19015645 (Version 1)
Quarter: 2021Q1

REPORT INFORMATION
  Report Type: Spontaneous
  Country: AU (occurrence: AU)
  Receive Date: 20210316
  Receipt Date: 20210316
  Transmission Date: 20210420
  Serious: Yes (Hospitalization)
  Sender: FDA-Public Use
  Company Number: AU-COLLEGIUM PHARMACEUTICAL, INC.-2021CGM00258

PATIENT
  Age: 26 Year
  Sex: Female

DRUGS (18)
  1. CLONIDINE. [Concomitant]
     Active Substance: CLONIDINE
     Route: 065
  2. ALL OTHER THERAPEUTIC PRODUCTS [Concomitant]
     Active Substance: UNSPECIFIED INGREDIENT
     Route: 065
  3. CLONAZEPAM. [Concomitant]
     Active Substance: CLONAZEPAM
     Route: 065
  4. RITUXIMAB. [Concomitant]
     Active Substance: RITUXIMAB
     Route: 065
  5. BACLOFEN. [Concomitant]
     Active Substance: BACLOFEN
     Route: 065
  6. GABAPENTIN. [Concomitant]
     Active Substance: GABAPENTIN
     Route: 065
  7. SODIUM VALPROATE [Concomitant]
     Active Substance: VALPROATE SODIUM
     Route: 065
  8. KETAMINE [Concomitant]
     Active Substance: KETAMINE
  9. KETAMINE [Concomitant]
     Active Substance: KETAMINE
     Route: 065
  10. TAPENTADOL [Suspect]
     Active Substance: TAPENTADOL
     Indication: PAIN
     Dosage: PROLONGED?RELEASE TABLET
     Route: 065
  11. TAPENTADOL [Suspect]
     Active Substance: TAPENTADOL
     Indication: PAIN
     Dosage: 100 MG, 3X/DAY
     Route: 065
  12. TRAMADOL HYDROCHLORIDE. [Suspect]
     Active Substance: TRAMADOL HYDROCHLORIDE
     Indication: PAIN
     Dosage: 100 MG, 4X/DAY
     Route: 065
  13. PARACETAMOL [Concomitant]
     Active Substance: ACETAMINOPHEN
     Route: 065
  14. KETAMINE [Concomitant]
     Active Substance: KETAMINE
     Route: 065
  15. STEROIDS [Concomitant]
     Active Substance: UNSPECIFIED INGREDIENT
     Route: 065
  16. CLONIDINE. [Concomitant]
     Active Substance: CLONIDINE
     Route: 065
  17. CLONAZEPAM. [Concomitant]
     Active Substance: CLONAZEPAM
     Route: 065
  18. BACLOFEN. [Concomitant]
     Active Substance: BACLOFEN
     Route: 065

REACTIONS (7)
  - Muscle tightness [Unknown]
  - Anger [Unknown]
  - Dyskinesia [Unknown]
  - Drug ineffective [Unknown]
  - Anxiety [Unknown]
  - Muscle spasms [Unknown]
  - Muscle rigidity [Unknown]
